FAERS Safety Report 11744491 (Version 8)
Quarter: 2016Q1

REPORT INFORMATION
  Report Type: Report from Study
  Country: ES (occurrence: ES)
  Receive Date: 20151116
  Receipt Date: 20160217
  Transmission Date: 20160525
  Serious: Yes (Death, Hospitalization)
  Sender: FDA-Public Use
  Company Number: ES-ABBVIE-15P-144-1499061-00

PATIENT
  Age: 76 Year
  Sex: Female

DRUGS (1)
  1. DUODOPA [Suspect]
     Active Substance: CARBIDOPA\LEVODOPA
     Indication: PARKINSON^S DISEASE
     Route: 050
     Dates: start: 20151021

REACTIONS (10)
  - Quadriplegia [Fatal]
  - Fall [Fatal]
  - Granuloma [Unknown]
  - Incision site erythema [Not Recovered/Not Resolved]
  - Paraplegia [Fatal]
  - Inguinal hernia [Recovering/Resolving]
  - Asthenia [Fatal]
  - Cardiac failure [Recovered/Resolved]
  - Cervical vertebral fracture [Fatal]
  - Lateral medullary syndrome [Fatal]

NARRATIVE: CASE EVENT DATE: 20151106
